FAERS Safety Report 6200096-0 (Version None)
Quarter: 2009Q2

REPORT INFORMATION
  Report Type: 
  Country: None (occurrence: None)
  Receive Date: 20090522
  Receipt Date: 20090406
  Transmission Date: 20091009
  Serious: Yes (Congenital Anomaly)
  Sender: FDA-Public Use
  Company Number: CZ-NOVOPROD-285049

PATIENT

DRUGS (2)
  1. NOVORAPID [Suspect]
     Indication: TYPE 2 DIABETES MELLITUS
     Dosage: 42 IU, QD
     Route: 064
     Dates: start: 20071203
  2. LEVEMIR [Suspect]
     Indication: TYPE 2 DIABETES MELLITUS
     Dosage: 28 IU, QD
     Route: 064
     Dates: start: 20071203, end: 20081002

REACTIONS (2)
  - ANENCEPHALY [None]
  - DRUG EXPOSURE DURING PREGNANCY [None]
